FAERS Safety Report 9337982 (Version 1)
Quarter: 2013Q2

REPORT INFORMATION
  Report Type: Spontaneous
  Country: CA (occurrence: CA)
  Receive Date: 20130609
  Receipt Date: 20130609
  Transmission Date: 20140414
  Serious: Yes (Death)
  Sender: FDA-Public Use
  Company Number: CA-CELGENEUS-028-21880-13060853

PATIENT
  Age: 65 Year
  Sex: Male

DRUGS (3)
  1. REVLIMID [Suspect]
     Indication: PLASMA CELL MYELOMA
     Route: 048
     Dates: start: 20121011
  2. REVLIMID [Suspect]
     Route: 048
     Dates: start: 20121016
  3. REVLIMID [Suspect]
     Route: 048
     Dates: start: 20121219

REACTIONS (1)
  - Death [Fatal]
